FAERS Safety Report 10713728 (Version 1)
Quarter: 2015Q1

REPORT INFORMATION
  Report Type: Spontaneous
  Country: US (occurrence: US)
  Receive Date: 20150115
  Receipt Date: 20150115
  Transmission Date: 20150721
  Serious: No
  Sender: FDA-Public Use
  Company Number: US-PFIZER INC-2015011459

PATIENT
  Age: 34 Year
  Sex: Female
  Weight: 61 kg

DRUGS (2)
  1. LYRICA [Suspect]
     Active Substance: PREGABALIN
     Indication: SYSTEMIC LUPUS ERYTHEMATOSUS
     Dosage: 25 MG, 2X/DAY
     Route: 048
     Dates: start: 2010
  2. LYRICA [Suspect]
     Active Substance: PREGABALIN
     Indication: SJOGREN^S SYNDROME
     Dosage: 75 MG, 3X/DAY
     Route: 048
     Dates: start: 2012

REACTIONS (2)
  - Condition aggravated [Unknown]
  - Product use issue [Unknown]
